FAERS Safety Report 19036101 (Version 1)
Quarter: 2021Q1

REPORT INFORMATION
  Report Type: Spontaneous
  Country: US (occurrence: US)
  Receive Date: 20210321
  Receipt Date: 20210321
  Transmission Date: 20210420
  Serious: Yes (Other)
  Sender: FDA-Public Use
  Company Number: US-TEVA-2021-US-1890902

PATIENT
  Age: 34 Year
  Sex: Female

DRUGS (1)
  1. TRI?LO?SPRINTEC [Suspect]
     Active Substance: ETHINYL ESTRADIOL\NORGESTIMATE
     Dosage: SHE HAS BEEN TAKING THE MEDICATION FOR THREE YEARS
     Route: 065

REACTIONS (1)
  - Coeliac disease [Unknown]
